FAERS Safety Report 6669069-8 (Version None)
Quarter: 2010Q2

REPORT INFORMATION
  Report Type: 
  Country: None (occurrence: None)
  Receive Date: 20100406
  Receipt Date: 20100330
  Transmission Date: 20101027
  Serious: Yes (Hospitalization)
  Sender: FDA-Public Use
  Company Number: US-SANOFI-AVENTIS-2010SA014322

PATIENT
  Age: 77 Year
  Sex: Male

DRUGS (8)
  1. MULTAQ [Suspect]
     Indication: ATRIAL FIBRILLATION
     Route: 048
     Dates: start: 20100307, end: 20100309
  2. MULTAQ [Suspect]
     Route: 048
     Dates: start: 20100310, end: 20100311
  3. MULTAQ [Suspect]
     Route: 048
     Dates: start: 20100312
  4. COUMADIN [Concomitant]
     Dosage: 4 MG FOUR DAYS PER WEEK, 3.5 MG THREE DAYS PER WEEK
     Route: 048
  5. PREDNISONE TAB [Concomitant]
     Route: 048
  6. TOPROL-XL [Concomitant]
     Route: 048
  7. CRESTOR [Concomitant]
     Route: 048
  8. SYNTHROID [Concomitant]
     Route: 048

REACTIONS (8)
  - ANXIETY [None]
  - BLOOD POTASSIUM DECREASED [None]
  - DYSPNOEA [None]
  - EJECTION FRACTION DECREASED [None]
  - FATIGUE [None]
  - FLUID OVERLOAD [None]
  - GAIT DISTURBANCE [None]
  - OFF LABEL USE [None]
